FAERS Safety Report 5287133-5 (Version None)
Quarter: 2007Q1

REPORT INFORMATION
  Report Type: 
  Country: None (occurrence: None)
  Receive Date: 20070116
  Receipt Date: 20060918
  Transmission Date: 20070707
  Serious: No
  Sender: FDA-Public Use
  Company Number: 2006SP003333

PATIENT
  Sex: Male
  Weight: 131.0895 kg

DRUGS (14)
  1. LUNESTA [Suspect]
     Indication: INSOMNIA
     Dosage: SEE IMAGE
     Route: 048
     Dates: start: 20060907, end: 20060912
  2. LUNESTA [Suspect]
     Indication: INSOMNIA
     Dosage: SEE IMAGE
     Route: 048
     Dates: start: 20060913
  3. INSULIN [Concomitant]
  4. SIMVASTATIN [Concomitant]
  5. NEXIUM [Concomitant]
  6. LISINOPRIL [Concomitant]
  7. METOPROLOL SUCCINATE [Concomitant]
  8. TOPIRAMATE [Concomitant]
  9. VALTREX [Concomitant]
  10. ASCORBIC ACID [Concomitant]
  11. VITAMIN E [Concomitant]
  12. CALCIUM [Concomitant]
  13. TADALAFIL [Concomitant]
  14. AMBIEN [Concomitant]

REACTIONS (2)
  - INITIAL INSOMNIA [None]
  - SLUGGISHNESS [None]
